FAERS Safety Report 23090359 (Version 3)
Quarter: 2024Q3

REPORT INFORMATION
  Report Type: Spontaneous
  Country: US (occurrence: US)
  Receive Date: 20231020
  Receipt Date: 20240828
  Transmission Date: 20241017
  Serious: Yes (Life-Threatening, Hospitalization, Other)
  Sender: PFIZER
  Company Number: US-MLMSERVICE-20231009-4584811-1

PATIENT
  Age: 75 Year
  Sex: Female

DRUGS (4)
  1. HYDROCORTISONE [Suspect]
     Active Substance: HYDROCORTISONE\HYDROCORTISONE ACETATE
     Indication: Prophylaxis
     Dosage: LOW-DOSE
  2. HYDROCORTISONE [Suspect]
     Active Substance: HYDROCORTISONE\HYDROCORTISONE ACETATE
     Indication: Adrenal insufficiency
  3. PREDNISONE [Suspect]
     Active Substance: PREDNISONE
     Indication: Hypersensitivity pneumonitis
     Dosage: UNK
  4. PREDNISONE [Suspect]
     Active Substance: PREDNISONE
     Indication: Eosinophilic pneumonia acute

REACTIONS (4)
  - Pneumonia [Unknown]
  - Multiple organ dysfunction syndrome [Unknown]
  - Septic shock [Unknown]
  - Off label use [Unknown]
